FAERS Safety Report 20714642 (Version 2)
Quarter: 2022Q2

REPORT INFORMATION
  Report Type: Spontaneous
  Country: FR (occurrence: FR)
  Receive Date: 20220415
  Receipt Date: 20220419
  Transmission Date: 20220721
  Serious: Yes (Hospitalization, Other)
  Sender: FDA-Public Use
  Company Number: None

PATIENT
  Age: 49 Year
  Sex: Female
  Weight: 68 kg

DRUGS (15)
  1. PREGABALIN [Suspect]
     Active Substance: PREGABALIN
     Indication: Neuralgia
     Dosage: 100 MG, 1X/DAY (QD)
     Route: 048
     Dates: end: 20210927
  2. PREGABALIN [Suspect]
     Active Substance: PREGABALIN
     Dosage: 150 MG, 1X/DAY (QD)
     Route: 048
     Dates: start: 20210928, end: 20211006
  3. PREGABALIN [Suspect]
     Active Substance: PREGABALIN
     Dosage: 100 MG, 1X/DAY (QD)
     Route: 048
     Dates: start: 20211007
  4. METHYLPREDNISOLONE SODIUM SUCCINATE [Suspect]
     Active Substance: METHYLPREDNISOLONE SODIUM SUCCINATE
     Indication: Arthralgia
     Dosage: 70 MG, 1X/DAY (QD)
     Route: 042
     Dates: start: 20210923, end: 20210927
  5. LANSOPRAZOLE [Suspect]
     Active Substance: LANSOPRAZOLE
     Indication: Helicobacter gastritis
     Dosage: 30 MG, 1X/DAY (QD)
     Route: 048
     Dates: start: 20210921
  6. NEFOPAM HYDROCHLORIDE [Suspect]
     Active Substance: NEFOPAM HYDROCHLORIDE
     Indication: Pain
     Dosage: UNK
     Route: 065
     Dates: start: 20210922, end: 20210923
  7. ENOXAPARIN SODIUM [Suspect]
     Active Substance: ENOXAPARIN SODIUM
     Indication: Thrombosis prophylaxis
     Dosage: 0.7 MG, 2X/DAY (Q12H)
     Route: 058
     Dates: start: 20210929, end: 20210930
  8. ENOXAPARIN SODIUM [Suspect]
     Active Substance: ENOXAPARIN SODIUM
     Dosage: 0.4 MG, 1X/DAY (QD)
     Route: 058
     Dates: start: 20211001, end: 20211006
  9. KETOPROFEN [Suspect]
     Active Substance: KETOPROFEN
     Indication: Arthralgia
     Dosage: 100 MG, 2X/DAY (Q12H)
     Route: 042
     Dates: start: 20210925, end: 20210927
  10. PHLOROGLUCINOL [Suspect]
     Active Substance: PHLOROGLUCINOL
     Indication: Abdominal pain
     Dosage: 160 MG, 3X/DAY (Q8H)
     Route: 048
     Dates: start: 20210924, end: 20211006
  11. PHLOROGLUCINOL [Suspect]
     Active Substance: PHLOROGLUCINOL
     Dosage: UNK
     Route: 065
  12. ACETAMINOPHEN [Suspect]
     Active Substance: ACETAMINOPHEN
     Indication: Pain
     Dosage: 1000 MG, 3X/DAY (Q8H)
     Route: 048
     Dates: start: 20210921, end: 20211006
  13. ACETAMINOPHEN [Suspect]
     Active Substance: ACETAMINOPHEN
     Dosage: UNK
     Route: 065
  14. OXAZEPAM [Suspect]
     Active Substance: OXAZEPAM
     Indication: Anxiety
     Dosage: 10 MG, 1X/DAY (QD)
     Route: 048
     Dates: start: 20210928
  15. METOCLOPRAMIDE HYDROCHLORIDE [Suspect]
     Active Substance: METOCLOPRAMIDE HYDROCHLORIDE
     Indication: Nausea
     Dosage: IF NEEDED
     Route: 065
     Dates: start: 20210930

REACTIONS (1)
  - Tubulointerstitial nephritis [Recovered/Resolved]

NARRATIVE: CASE EVENT DATE: 20211001
